FAERS Safety Report 22014577 (Version 3)
Quarter: 2024Q1

REPORT INFORMATION
  Report Type: Report from Study
  Country: US (occurrence: US)
  Receive Date: 20230221
  Receipt Date: 20240214
  Transmission Date: 20240409
  Serious: Yes (Death, Hospitalization, Other)
  Sender: FDA-Public Use
  Company Number: US-UCBSA-2022068279

PATIENT
  Age: 1 Year
  Sex: Female
  Weight: 3.52 kg

DRUGS (13)
  1. FINTEPLA [Suspect]
     Active Substance: FENFLURAMINE
     Indication: Product used for unknown indication
     Dosage: 1.3 MILLILITER, 2X/DAY (BID)
  2. FINTEPLA [Suspect]
     Active Substance: FENFLURAMINE
     Dosage: 1.3 MILLILITER, 2X/DAY (BID)
     Dates: start: 20220420
  3. FINTEPLA [Suspect]
     Active Substance: FENFLURAMINE
     Dosage: 1.3 MILLILITER, 2X/DAY (BID)
  4. FINTEPLA [Suspect]
     Active Substance: FENFLURAMINE
     Dosage: 1.5 MILLILITER, 2X/DAY (BID)
  5. VIVONEX T.E.N. [Concomitant]
     Indication: Product used for unknown indication
     Dosage: 3 ENVELOPS DAILY WITH 30-40 OUNCE OF WATER
  6. ATIVAN [Concomitant]
     Active Substance: LORAZEPAM
     Indication: Seizure cluster
     Dosage: 0.4 MILLIGRAM
  7. VERSED [Concomitant]
     Active Substance: MIDAZOLAM HYDROCHLORIDE
     Indication: Seizure
     Dosage: 0.5 MILLIGRAM
  8. FYCOMPA [Concomitant]
     Active Substance: PERAMPANEL
     Indication: Product used for unknown indication
     Dosage: 12 MILLIGRAM, ONCE DAILY (QD)
  9. PHENOBARBITAL [Concomitant]
     Active Substance: PHENOBARBITAL
     Indication: Product used for unknown indication
     Dosage: 8.2 MILLIGRAM/KILOGRAM, ONCE DAILY (QD)
  10. CLOBAZAM [Concomitant]
     Active Substance: CLOBAZAM
     Indication: Product used for unknown indication
     Dosage: 1 MILLILITER, 2X/DAY (BID)
  11. OMEPRAZOLE [Concomitant]
     Active Substance: OMEPRAZOLE
     Indication: Product used for unknown indication
     Dosage: 5 MILLIGRAM, ONCE DAILY (QD)
  12. FLUNARIZINE [Concomitant]
     Active Substance: FLUNARIZINE
     Indication: Dystonia
     Dosage: 5 MILLIGRAM, ONCE DAILY (QD)
  13. KETAMINE [Concomitant]
     Active Substance: KETAMINE
     Indication: Product used for unknown indication
     Dosage: UNK

REACTIONS (10)
  - Cardiac failure congestive [Fatal]
  - Seizure [Recovered/Resolved]
  - Blindness cortical [Recovered/Resolved]
  - Angioedema [Recovered/Resolved]
  - Achromobacter infection [Recovered/Resolved]
  - Sinus arrhythmia [Unknown]
  - Lethargy [Unknown]
  - Dyspnoea [Unknown]
  - Upper respiratory tract congestion [Unknown]
  - Off label use [Unknown]

NARRATIVE: CASE EVENT DATE: 20230112
